FAERS Safety Report 23548400 (Version 1)
Quarter: 2024Q1

REPORT INFORMATION
  Report Type: Other
  Country: DE (occurrence: DE)
  Receive Date: 20240221
  Receipt Date: 20240221
  Transmission Date: 20240410
  Serious: Yes (Life-Threatening, Hospitalization)
  Sender: FDA-Public Use
  Company Number: DE-DEXPHARM-20240302

PATIENT
  Age: 79 Year
  Sex: Male

DRUGS (7)
  1. METHOTREXATE [Interacting]
     Active Substance: METHOTREXATE
     Indication: Psoriatic arthropathy
     Dosage: 15 MILLIGRAM PER WEEK
  2. PANTOPRAZOLE [Interacting]
     Active Substance: PANTOPRAZOLE
  3. RAMIPRIL [Concomitant]
     Active Substance: RAMIPRIL
  4. TORSEMIDE [Interacting]
     Active Substance: TORSEMIDE
  5. CANDESARTAN [Concomitant]
     Active Substance: CANDESARTAN
  6. ASPIRIN [Interacting]
     Active Substance: ASPIRIN
  7. HYDROCHLOROTHIAZIDE [Concomitant]
     Active Substance: HYDROCHLOROTHIAZIDE

REACTIONS (4)
  - Toxicity to various agents [Recovered/Resolved]
  - Drug interaction [Recovered/Resolved]
  - Lung infiltration [Recovered/Resolved]
  - Sepsis [Recovered/Resolved]
